FAERS Safety Report 5423696-4 (Version None)
Quarter: 2007Q3

REPORT INFORMATION
  Report Type: 
  Country: None (occurrence: None)
  Receive Date: 20070823
  Receipt Date: 20070815
  Transmission Date: 20080115
  Serious: Yes (Hospitalization)
  Sender: FDA-Public Use
  Company Number: B0484300A

PATIENT
  Sex: Female

DRUGS (1)
  1. ZYBAN [Suspect]
     Indication: DRUG USE FOR UNKNOWN INDICATION
     Dosage: 70TAB PER DAY
     Route: 065
     Dates: start: 20070813, end: 20070813

REACTIONS (6)
  - COMA [None]
  - CONDITION AGGRAVATED [None]
  - CONVULSION [None]
  - LIFE SUPPORT [None]
  - OVERDOSE [None]
  - SELF-INDUCED VOMITING [None]
